FAERS Safety Report 4311809-7 (Version None)
Quarter: 2004Q1

REPORT INFORMATION
  Report Type: 
  Country: None (occurrence: None)
  Receive Date: 20040302
  Receipt Date: 20040108
  Transmission Date: 20041129
  Serious: No
  Sender: FDA-Public Use
  Company Number: 200410501BWH

PATIENT
  Age: 55 Year
  Sex: Male
  Weight: 88.4514 kg

DRUGS (2)
  1. LEVITRA [Suspect]
     Indication: ERECTILE DYSFUNCTION
     Dosage: 2.5 MG, TOTAL DAILY, ORAL; SEE IMAGE
     Route: 048
     Dates: start: 20031201
  2. LEVITRA [Suspect]
     Indication: ERECTILE DYSFUNCTION
     Dosage: 2.5 MG, TOTAL DAILY, ORAL; SEE IMAGE
     Route: 048
     Dates: start: 20040108

REACTIONS (5)
  - ANXIETY [None]
  - DRY MOUTH [None]
  - FLUSHING [None]
  - NASAL CONGESTION [None]
  - PANIC REACTION [None]
